FAERS Safety Report 13422002 (Version 1)
Quarter: 2017Q2

REPORT INFORMATION
  Report Type: Spontaneous
  Country: US (occurrence: US)
  Receive Date: 20170410
  Receipt Date: 20170410
  Transmission Date: 20170830
  Serious: Yes (Hospitalization, Other)
  Sender: FDA-Public Use
  Company Number: US-ALVOGEN-2017-ALVOGEN-091872

PATIENT
  Age: 6 Month
  Sex: Male
  Weight: 4.7 kg

DRUGS (20)
  1. MIDAZOLAM [Suspect]
     Active Substance: MIDAZOLAM HYDROCHLORIDE
     Indication: AGITATION
     Dosage: MIDAZOLAM INFUSION OF 1 MICROGRAMS PER KILOGRAM PER MINUTE (MCG/KG/MIN) WAS ADDED ON DAY NINE
     Route: 042
  2. LORAZEPAM. [Suspect]
     Active Substance: LORAZEPAM
     Indication: AGITATION
     Route: 042
  3. RISPERIDONE. [Concomitant]
     Active Substance: RISPERIDONE
     Indication: AGITATION
     Dosage: DELIRIUM ASSOCIATED AGITATION
  4. GABAPENTIN. [Suspect]
     Active Substance: GABAPENTIN
     Indication: AGITATION
  5. MIDAZOLAM [Suspect]
     Active Substance: MIDAZOLAM HYDROCHLORIDE
     Indication: AGITATION
     Dosage: MIDAZOLAM INFUSION OF 1 MICROGRAMS PER KILOGRAM PER MINUTE (MCG/KG/MIN) WAS ADDED ON DAY NINE
     Route: 042
  6. PHENOBARBITAL. [Suspect]
     Active Substance: PHENOBARBITAL
     Indication: AGITATION
  7. RISPERIDONE. [Concomitant]
     Active Substance: RISPERIDONE
     Indication: AGITATION
     Dosage: DELIRIUM ASSOCIATED AGITATION
  8. DIAZEPAM. [Suspect]
     Active Substance: DIAZEPAM
     Indication: AGITATION
  9. DIAZEPAM. [Suspect]
     Active Substance: DIAZEPAM
     Indication: AGITATION
  10. DEXMEDETOMIDINE. [Suspect]
     Active Substance: DEXMEDETOMIDINE
     Indication: AGITATION
     Dosage: 2 MCG/KG/HR
  11. MIDAZOLAM [Suspect]
     Active Substance: MIDAZOLAM HYDROCHLORIDE
     Indication: AGITATION
     Dosage: MIDAZOLAM INFUSION OF 1 MICROGRAMS PER KILOGRAM PER MINUTE (MCG/KG/MIN) WAS ADDED ON DAY NINE
     Route: 042
  12. MORPHINE [Suspect]
     Active Substance: MORPHINE
     Indication: AGITATION
     Route: 042
  13. RISPERIDONE. [Concomitant]
     Active Substance: RISPERIDONE
     Indication: AGITATION
     Dosage: DELIRIUM ASSOCIATED AGITATION
  14. MIDAZOLAM [Suspect]
     Active Substance: MIDAZOLAM HYDROCHLORIDE
     Indication: AGITATION
     Dosage: MCG/KG/MIN
     Route: 042
  15. FENTANYL. [Suspect]
     Active Substance: FENTANYL
     Indication: AGITATION
     Dosage: 1 MCG/KG/HR
  16. FENTANYL. [Suspect]
     Active Substance: FENTANYL
     Indication: AGITATION
     Dosage: 1 MCG/KG/HR
  17. DEXMEDETOMIDINE. [Suspect]
     Active Substance: DEXMEDETOMIDINE
     Indication: AGITATION
     Dosage: 2 MCG/KG/HR
  18. METHADONE [Suspect]
     Active Substance: METHADONE HYDROCHLORIDE
     Indication: AGITATION
  19. FENTANYL. [Suspect]
     Active Substance: FENTANYL
     Indication: AGITATION
     Dosage: 1 MCG/KG/HR
  20. DEXMEDETOMIDINE. [Suspect]
     Active Substance: DEXMEDETOMIDINE
     Indication: AGITATION
     Dosage: 2 MCG/KG/HR

REACTIONS (3)
  - Drug ineffective [Recovered/Resolved]
  - Toxicity to various agents [Recovered/Resolved]
  - Delirium [Recovered/Resolved]
